FAERS Safety Report 8560265-1 (Version None)
Quarter: 2012Q3

REPORT INFORMATION
  Report Type: 
  Country: None (occurrence: None)
  Receive Date: 20120802
  Receipt Date: 20120727
  Transmission Date: 20120928
  Serious: Yes (Life-Threatening, Hospitalization, Other)
  Sender: FDA-Public Use
  Company Number: HK-SANOFI-AVENTIS-2012SA045969

PATIENT
  Age: 66 Year
  Sex: Male

DRUGS (3)
  1. CISPLATIN [Suspect]
     Indication: NON-SMALL CELL LUNG CANCER
     Route: 042
     Dates: start: 20120517, end: 20120517
  2. CISPLATIN [Suspect]
     Route: 042
     Dates: start: 20120619, end: 20120619
  3. DOCETAXEL [Suspect]
     Indication: NON-SMALL CELL LUNG CANCER
     Route: 042
     Dates: start: 20120507, end: 20120507

REACTIONS (3)
  - PNEUMONIA [None]
  - HYPONATRAEMIA [None]
  - CHRONIC OBSTRUCTIVE PULMONARY DISEASE [None]
